FAERS Safety Report 7960422-9 (Version None)
Quarter: 2011Q4

REPORT INFORMATION
  Report Type: 
  Country: None (occurrence: None)
  Receive Date: 20111206
  Receipt Date: 20111201
  Transmission Date: 20120403
  Serious: Yes (Other)
  Sender: FDA-Public Use
  Company Number: US-PFIZER INC-2011228380

PATIENT
  Age: 48 Year
  Sex: Female

DRUGS (5)
  1. ATENOLOL [Concomitant]
     Indication: HYPERTENSION
     Dosage: 100 MG DAILY
  2. CHANTIX [Suspect]
     Indication: SMOKING CESSATION THERAPY
     Dosage: UNK, STARTING DOSE PACK
     Route: 048
     Dates: start: 20110907, end: 20110901
  3. LISIPRIL [Concomitant]
     Indication: HYPERTENSION
     Dosage: 20 MG, DAILY
  4. CHANTIX [Suspect]
     Dosage: UNK
     Dates: start: 20110901, end: 20110101
  5. LEXAPRO [Concomitant]
     Indication: DEPRESSION
     Dosage: 10 MG DAILY

REACTIONS (13)
  - CHEST PAIN [None]
  - THYROXINE ABNORMAL [None]
  - GASTROENTERITIS VIRAL [None]
  - DRUG INEFFECTIVE [None]
  - TOBACCO USER [None]
  - LIPIDS ABNORMAL [None]
  - MUSCULOSKELETAL PAIN [None]
  - ANGINA PECTORIS [None]
  - GLYCOSYLATED HAEMOGLOBIN [None]
  - PAIN IN EXTREMITY [None]
  - METABOLIC FUNCTION TEST [None]
  - ABNORMAL DREAMS [None]
  - FULL BLOOD COUNT ABNORMAL [None]
